FAERS Safety Report 20499884 (Version 1)
Quarter: 2022Q1

REPORT INFORMATION
  Report Type: Spontaneous
  Country: US (occurrence: US)
  Receive Date: 20220222
  Receipt Date: 20220222
  Transmission Date: 20220423
  Serious: Yes (Hospitalization, Other)
  Sender: FDA-Public Use
  Company Number: US-UCBSA-2021024861

PATIENT
  Age: 20 Year
  Sex: Male

DRUGS (1)
  1. LEVETIRACETAM [Suspect]
     Active Substance: LEVETIRACETAM
     Indication: Seizure
     Dosage: 500 MILLIGRAM, 2X/DAY (BID)
     Route: 048

REACTIONS (6)
  - Headache [Recovered/Resolved]
  - Seizure [Unknown]
  - Nausea [Unknown]
  - Vomiting [Unknown]
  - SARS-CoV-2 test positive [Unknown]
  - SARS-CoV-2 test negative [Unknown]
